FAERS Safety Report 6552893-X (Version None)
Quarter: 2010Q1

REPORT INFORMATION
  Report Type: 
  Country: None (occurrence: None)
  Receive Date: 20100122
  Receipt Date: 20090420
  Transmission Date: 20100710
  Serious: Yes (Death)
  Sender: FDA-Public Use
  Company Number: 004496

PATIENT

DRUGS (4)
  1. PREDNISOLONE [Suspect]
     Indication: VASCULITIS NECROTISING
     Dosage: (1 MG/KG QD, 1 MG/KG/DAY ORAL), (15 MG QD, 15 MG/DAY ORAL), (7.5 MG QD, 7,5 MG/DAY ORAL)
     Route: 048
  2. PREDNISOLONE [Suspect]
     Indication: VASCULITIS NECROTISING
     Dosage: (1 MG/KG QD, 1 MG/KG/DAY ORAL), (15 MG QD, 15 MG/DAY ORAL), (7.5 MG QD, 7,5 MG/DAY ORAL)
     Route: 048
  3. PREDNISOLONE [Suspect]
     Indication: VASCULITIS NECROTISING
     Dosage: (1 MG/KG QD, 1 MG/KG/DAY ORAL), (15 MG QD, 15 MG/DAY ORAL), (7.5 MG QD, 7,5 MG/DAY ORAL)
     Route: 048
  4. CYCLOPHOSPHAMIDE [Suspect]
     Indication: VASCULITIS NECROTISING
     Dosage: (2 MG/KG/DAY MAX 150MG/DAY UNTIL REMISSION ( MIN 3 TO 6 MONTHS ))

REACTIONS (1)
  - PNEUMONIA CYTOMEGALOVIRAL [None]
